FAERS Safety Report 5154582-5 (Version None)
Quarter: 2006Q4

REPORT INFORMATION
  Report Type: 
  Country: None (occurrence: None)
  Receive Date: 20061114
  Receipt Date: 20061101
  Transmission Date: 20070319
  Serious: Yes (Disabling)
  Sender: FDA-Public Use
  Company Number: 06-0131PO FU 2

PATIENT
  Age: 71 Year
  Sex: Female

DRUGS (3)
  1. MEFENAMIC ACID [Suspect]
     Indication: DENTAL CARIES
     Dosage: ONE CAPSULE, TID; PO
     Route: 048
     Dates: start: 20060910, end: 20060916
  2. SELBEX (TEPRENONE) [Suspect]
     Indication: DENTAL CARIES
     Dosage: 3 CAPSULES, QD,
     Dates: start: 20060910, end: 20060916
  3. NORVASC [Concomitant]

REACTIONS (4)
  - MUCOSAL HAEMORRHAGE [None]
  - OEDEMA MOUTH [None]
  - ORAL MUCOSA EROSION [None]
  - ORAL MUCOSAL BLISTERING [None]
